FAERS Safety Report 12213152 (Version 1)
Quarter: 2016Q1

REPORT INFORMATION
  Report Type: Spontaneous
  Country: US (occurrence: US)
  Receive Date: 20160328
  Receipt Date: 20160328
  Transmission Date: 20160526
  Serious: No
  Sender: FDA-Public Use
  Company Number: US-ASTRAZENECA-2016SE23669

PATIENT
  Age: 55 Year
  Sex: Female
  Weight: 105.2 kg

DRUGS (4)
  1. BYDUREON [Suspect]
     Active Substance: EXENATIDE
     Indication: TYPE 2 DIABETES MELLITUS
     Route: 058
     Dates: start: 201511
  2. CORTISOL [Concomitant]
     Active Substance: HYDROCORTISONE
     Indication: INJECTION SITE PRURITUS
  3. CORTISOL [Concomitant]
     Active Substance: HYDROCORTISONE
     Indication: INJECTION SITE ERYTHEMA
  4. GLUCOPHAGE [Concomitant]
     Active Substance: METFORMIN HYDROCHLORIDE
     Indication: TYPE 2 DIABETES MELLITUS
     Route: 048
     Dates: start: 2003

REACTIONS (9)
  - Underdose [Unknown]
  - Injection site pain [Unknown]
  - Injection site mass [Unknown]
  - Device leakage [Unknown]
  - Injection site erythema [Recovering/Resolving]
  - Blood glucose increased [Not Recovered/Not Resolved]
  - Injection site haemorrhage [Unknown]
  - Injection site pruritus [Recovering/Resolving]
  - Injection site extravasation [Unknown]

NARRATIVE: CASE EVENT DATE: 201511
